FAERS Safety Report 19311247 (Version 1)
Quarter: 2021Q2

REPORT INFORMATION
  Report Type: Spontaneous
  Country: JP (occurrence: JP)
  Receive Date: 20210527
  Receipt Date: 20210527
  Transmission Date: 20210717
  Serious: Yes (Hospitalization, Other)
  Sender: FDA-Public Use
  Company Number: JP-GLAXOSMITHKLINE-JP2021JPN107600

PATIENT
  Age: 70 Year
  Sex: Female
  Weight: 40.6 kg

DRUGS (11)
  1. INLYTA [Suspect]
     Active Substance: AXITINIB
     Dosage: 10 MG, BID
     Route: 048
     Dates: start: 20200801, end: 20201018
  2. NEXIUM [Concomitant]
     Active Substance: ESOMEPRAZOLE MAGNESIUM
     Dosage: 20 MG
  3. INLYTA [Suspect]
     Active Substance: AXITINIB
     Dosage: 5 MG, BID
     Route: 048
     Dates: start: 20201106, end: 20201218
  4. URSODEOXYCHOLIC ACID TABLETS [Concomitant]
     Dosage: 100 MG
  5. MUCOSTA TABLETS [Concomitant]
     Dosage: UNK
  6. AMLODIN OD TABLETS [Concomitant]
     Dosage: 5 MG
  7. INLYTA [Suspect]
     Active Substance: AXITINIB
     Indication: RENAL CELL CARCINOMA
     Dosage: 5 MG, BID
     Route: 048
     Dates: start: 20200710, end: 20200731
  8. LOXONIN TABLETS [Concomitant]
     Active Substance: LOXOPROFEN SODIUM
     Dosage: UNK
  9. THYRADIN S [Concomitant]
     Active Substance: LEVOTHYROXINE SODIUM
     Dosage: 25 ?G
  10. VALTREX [Suspect]
     Active Substance: VALACYCLOVIR HYDROCHLORIDE
     Indication: HERPES ZOSTER
     Dosage: 1000 MG, TID
     Route: 048
     Dates: start: 20201216, end: 20201218
  11. INLYTA [Suspect]
     Active Substance: AXITINIB
     Dosage: 10 MG
     Route: 048
     Dates: start: 20210108

REACTIONS (4)
  - Renal impairment [Recovered/Resolved]
  - Renal failure [Unknown]
  - Dehydration [Unknown]
  - Overdose [Unknown]

NARRATIVE: CASE EVENT DATE: 20201218
